FAERS Safety Report 9210960 (Version 2)
Quarter: 2013Q2

REPORT INFORMATION
  Report Type: Spontaneous
  Country: US (occurrence: US)
  Receive Date: 20130404
  Receipt Date: 20130429
  Transmission Date: 20140414
  Serious: Yes (Hospitalization)
  Sender: FDA-Public Use
  Company Number: US-BAYER-2013-038376

PATIENT
  Age: 67 Year
  Sex: Female
  Weight: 79.37 kg

DRUGS (4)
  1. ALKA-SELTZER PLUS COLD FORMULA DAY/NIGHT EFFERVESCENT COMBI DAY [Suspect]
     Indication: NASOPHARYNGITIS
     Dosage: 1 DF, ONCE
     Route: 048
     Dates: start: 20130103, end: 20130103
  2. ONE A DAY WOMEN^S PETITES [Concomitant]
  3. SYNTHROID [Concomitant]
  4. ASPIRIN [Concomitant]
     Dosage: 81 MG, UNK

REACTIONS (7)
  - Mobility decreased [Recovered/Resolved]
  - Paraesthesia oral [Recovered/Resolved]
  - Paraesthesia [Recovered/Resolved]
  - Mydriasis [Recovered/Resolved]
  - Memory impairment [Recovered/Resolved]
  - Unresponsive to stimuli [Recovered/Resolved]
  - Hypersensitivity [None]
